FAERS Safety Report 7908581-8 (Version None)
Quarter: 2011Q4

REPORT INFORMATION
  Report Type: 
  Country: None (occurrence: None)
  Receive Date: 20111111
  Receipt Date: 20111107
  Transmission Date: 20120403
  Serious: Yes (Other)
  Sender: FDA-Public Use
  Company Number: PHEH2011US07951

PATIENT
  Sex: Female
  Weight: 75.283 kg

DRUGS (7)
  1. LOTREL [Concomitant]
     Indication: HYPERTENSION
     Dosage: UNK UKN, UNK
     Dates: start: 20081231
  2. PRILOSEC [Concomitant]
     Indication: GASTROOESOPHAGEAL REFLUX DISEASE
     Dosage: UNK UKN, UNK
     Dates: start: 20090817
  3. LYRICA [Concomitant]
     Indication: NEUROPATHY PERIPHERAL
     Dosage: UNK UKN, UNK
     Dates: start: 20081231
  4. RECLAST [Suspect]
     Indication: OSTEOPOROSIS
     Dosage: 5 MG, YEARLY
     Route: 042
     Dates: start: 20110901
  5. TRAMADOL HCL [Concomitant]
     Indication: NEUROPATHY PERIPHERAL
     Dosage: UNK UKN, UNK
     Dates: start: 20110211
  6. OMEPRAZOLE [Concomitant]
     Indication: GASTROOESOPHAGEAL REFLUX DISEASE
  7. METOPROLOL [Concomitant]
     Indication: HYPERTENSION
     Dosage: UNK UKN, UNK
     Dates: start: 20081231

REACTIONS (5)
  - VOMITING [None]
  - NAUSEA [None]
  - DIARRHOEA [None]
  - SKIN EXFOLIATION [None]
  - RASH [None]
